FAERS Safety Report 16350331 (Version 1)
Quarter: 2019Q2

REPORT INFORMATION
  Report Type: Spontaneous
  Country: FR (occurrence: FR)
  Receive Date: 20190524
  Receipt Date: 20190524
  Transmission Date: 20190711
  Serious: Yes (Other)
  Sender: FDA-Public Use
  Company Number: FR-AMGEN-FRASP2019079372

PATIENT
  Age: 78 Year
  Sex: Female
  Weight: 64 kg

DRUGS (3)
  1. ARANESP [Suspect]
     Active Substance: DARBEPOETIN ALFA
     Indication: CHRONIC KIDNEY DISEASE
     Dosage: 100 MICROGRAM
     Route: 058
     Dates: end: 20180410
  2. MIRCERA [Suspect]
     Active Substance: METHOXY POLYETHYLENE GLYCOL-EPOETIN BETA
     Indication: CHRONIC KIDNEY DISEASE
     Dosage: 100 MICROGRAM
     Route: 058
     Dates: start: 201804, end: 20180716
  3. MIRCERA [Suspect]
     Active Substance: METHOXY POLYETHYLENE GLYCOL-EPOETIN BETA
     Dosage: 100 MICROGRAM
     Route: 058
     Dates: start: 20181219, end: 20190119

REACTIONS (3)
  - Dermatitis bullous [Recovered/Resolved]
  - Erythema multiforme [Recovered/Resolved]
  - Dermatitis bullous [Recovered/Resolved]

NARRATIVE: CASE EVENT DATE: 201803
